FAERS Safety Report 18294223 (Version 2)
Quarter: 2020Q4

REPORT INFORMATION
  Report Type: Spontaneous
  Country: DE (occurrence: DE)
  Receive Date: 20200922
  Receipt Date: 20201028
  Transmission Date: 20210113
  Serious: Yes (Hospitalization, Other)
  Sender: FDA-Public Use
  Company Number: DE-TAKEDA-2020TUS037227

PATIENT
  Age: 51 Year
  Sex: Female

DRUGS (10)
  1. ETORICOXIB. [Concomitant]
     Active Substance: ETORICOXIB
     Indication: MYALGIA
     Dosage: UNK
  2. BETNESOL                           /00008502/ [Concomitant]
     Active Substance: BETAMETHASONE SODIUM PHOSPHATE
     Dosage: UNK
     Route: 054
  3. ENTYVIO [Suspect]
     Active Substance: VEDOLIZUMAB
     Indication: CROHN^S DISEASE
     Dosage: 300 MILLIGRAM
     Route: 042
     Dates: start: 20200423
  4. ETORICOXIB. [Concomitant]
     Active Substance: ETORICOXIB
     Indication: ARTHRALGIA
  5. GYNOKADIN                          /00045401/ [Concomitant]
     Active Substance: ESTRADIOL
     Dosage: UNK
  6. VITAMIN B12 [Concomitant]
     Active Substance: CYANOCOBALAMIN
     Dosage: UNK
  7. LOPERAMIDE [Concomitant]
     Active Substance: LOPERAMIDE
     Indication: DIARRHOEA
     Dosage: UNK
  8. TRIMIPRAMINE [Concomitant]
     Active Substance: TRIMIPRAMINE
     Indication: SLEEP DISORDER
     Dosage: UNK
  9. NOVAMINSULFON [Concomitant]
     Active Substance: METAMIZOLE
     Indication: ABDOMINAL PAIN UPPER
     Dosage: UNK
  10. MESALAZINE [Concomitant]
     Active Substance: MESALAMINE
     Indication: CROHN^S DISEASE
     Dosage: 3 GRAM

REACTIONS (4)
  - Erythema [Unknown]
  - Herpes zoster [Unknown]
  - Erysipelas [Unknown]
  - Drug ineffective [Unknown]
